FAERS Safety Report 6390920-3 (Version None)
Quarter: 2009Q4

REPORT INFORMATION
  Report Type: 
  Country: None (occurrence: None)
  Receive Date: 20091003
  Receipt Date: 20090925
  Transmission Date: 20100525
  Serious: Yes (Hospitalization)
  Sender: FDA-Public Use
  Company Number: 2009AL006251

PATIENT
  Age: 33 Year
  Sex: Male
  Weight: 86 kg

DRUGS (4)
  1. FEVERALL [Suspect]
     Indication: OVERDOSE
     Dosage: 24 GM
  2. CITALOPRAM HYDROBROMIDE [Suspect]
     Dosage: 30 MG;QD
  3. BROMAZEPAM [Concomitant]
  4. LITHIUM [Concomitant]

REACTIONS (9)
  - ANAPHYLACTIC REACTION [None]
  - BRADYCARDIA [None]
  - CARDIAC ARREST [None]
  - FLUSHING [None]
  - HYPOTENSION [None]
  - MULTIPLE DRUG OVERDOSE INTENTIONAL [None]
  - RESPIRATORY DEPRESSION [None]
  - URTICARIA [None]
  - VOMITING [None]
